FAERS Safety Report 9609461 (Version 1)
Quarter: 2013Q4

REPORT INFORMATION
  Report Type: Spontaneous
  Country: US (occurrence: US)
  Receive Date: 20131009
  Receipt Date: 20131009
  Transmission Date: 20140711
  Serious: No
  Sender: FDA-Public Use
  Company Number: US-PURDUE-USA-2012-0095093

PATIENT
  Sex: Male

DRUGS (3)
  1. BUTRANS [Suspect]
     Indication: BACK PAIN
     Dosage: 10 MCG, UNK
     Route: 062
  2. BUTRANS [Suspect]
     Dosage: 20 MCG, UNK
     Route: 062
  3. BUTRANS [Suspect]
     Dosage: 15 MCG, (5MCG AND 10MCG TOGETHER)
     Route: 062

REACTIONS (3)
  - Extra dose administered [Not Recovered/Not Resolved]
  - Unevaluable event [Recovered/Resolved]
  - Inadequate analgesia [Recovered/Resolved]
